FAERS Safety Report 6316015-2 (Version None)
Quarter: 2009Q3

REPORT INFORMATION
  Report Type: 
  Country: None (occurrence: None)
  Receive Date: 20090820
  Receipt Date: 20090817
  Transmission Date: 20100115
  Serious: Yes (Other)
  Sender: FDA-Public Use
  Company Number: US-JNJFOC-20090600353

PATIENT
  Sex: Male

DRUGS (2)
  1. LEVAQUIN [Suspect]
     Indication: CHRONIC OBSTRUCTIVE PULMONARY DISEASE
     Route: 048
  2. AZITHROMYCIN [Suspect]
     Indication: PNEUMONIA
     Dosage: 500-750
     Route: 065

REACTIONS (4)
  - ABASIA [None]
  - MUSCLE RUPTURE [None]
  - MUSCULAR WEAKNESS [None]
  - TENDON RUPTURE [None]
